FAERS Safety Report 7183279-5 (Version None)
Quarter: 2010Q4

REPORT INFORMATION
  Report Type: 
  Country: None (occurrence: None)
  Receive Date: 20101222
  Receipt Date: 20100524
  Transmission Date: 20110411
  Serious: No
  Sender: FDA-Public Use
  Company Number: A0864185A

PATIENT
  Sex: Female

DRUGS (1)
  1. FLONASE [Suspect]
     Route: 065

REACTIONS (5)
  - CONFUSIONAL STATE [None]
  - EYE PAIN [None]
  - FEELING JITTERY [None]
  - ILL-DEFINED DISORDER [None]
  - SOMNOLENCE [None]
